FAERS Safety Report 7233590-4 (Version None)
Quarter: 2011Q1

REPORT INFORMATION
  Report Type: 
  Country: None (occurrence: None)
  Receive Date: 20110119
  Receipt Date: 20100106
  Transmission Date: 20110831
  Serious: No
  Sender: FDA-Public Use
  Company Number: US-PFIZER INC-2010002780

PATIENT

DRUGS (1)
  1. AROMASIN [Suspect]

REACTIONS (2)
  - BONE PAIN [None]
  - ARTHRALGIA [None]
